FAERS Safety Report 14600959 (Version 2)
Quarter: 2018Q1

REPORT INFORMATION
  Report Type: Report from Study
  Country: US (occurrence: AR)
  Receive Date: 20180305
  Receipt Date: 20180319
  Transmission Date: 20180509
  Serious: Yes (Other)
  Sender: FDA-Public Use
  Company Number: US-SUNOVION-2018SUN000838

PATIENT
  Sex: Male

DRUGS (2)
  1. INDACATEROL [Suspect]
     Active Substance: INDACATEROL
     Indication: HYPOXIA
  2. INDACATEROL [Suspect]
     Active Substance: INDACATEROL
     Indication: CHRONIC OBSTRUCTIVE PULMONARY DISEASE
     Dosage: 1 DF, QD (STARTED 8 OR 9 MONTHS AGO AND STOPPED 7 MONTHS AGO); UNKNOWN
     Route: 065
     Dates: start: 2017

REACTIONS (2)
  - Lung neoplasm malignant [Recovering/Resolving]
  - Pain [Unknown]
